FAERS Safety Report 13904887 (Version 1)
Quarter: 2017Q3

REPORT INFORMATION
  Report Type: Spontaneous
  Country: US (occurrence: US)
  Receive Date: 20170825
  Receipt Date: 20170825
  Transmission Date: 20171127
  Serious: Yes (Other)
  Sender: FDA-Public Use
  Company Number: US-009507513-1708USA008899

PATIENT
  Age: 29 Year
  Sex: Female

DRUGS (1)
  1. NEXPLANON [Suspect]
     Active Substance: ETONOGESTREL
     Indication: CONTRACEPTION
     Dosage: 68 MG IMPLANT,FREQUENCY REPORTED AS DAILY
     Route: 059
     Dates: start: 20161102, end: 20170711

REACTIONS (2)
  - Menorrhagia [Recovered/Resolved]
  - Polymenorrhagia [Recovered/Resolved]

NARRATIVE: CASE EVENT DATE: 20170711
